FAERS Safety Report 25154838 (Version 1)
Quarter: 2025Q2

REPORT INFORMATION
  Report Type: Spontaneous
  Country: US (occurrence: US)
  Receive Date: 20250403
  Receipt Date: 20250403
  Transmission Date: 20250717
  Serious: Yes (Other)
  Sender: PFIZER
  Company Number: US-PFIZER INC-PV202500038867

PATIENT
  Age: 74 Year
  Sex: Male

DRUGS (6)
  1. BRAFTOVI [Suspect]
     Active Substance: ENCORAFENIB
     Indication: Colorectal cancer metastatic
     Dates: start: 20240626
  2. BRAFTOVI [Suspect]
     Active Substance: ENCORAFENIB
  3. BRAFTOVI [Suspect]
     Active Substance: ENCORAFENIB
     Dates: end: 202405
  4. BRAFTOVI [Suspect]
     Active Substance: ENCORAFENIB
     Dates: end: 202408
  5. BRAFTOVI [Suspect]
     Active Substance: ENCORAFENIB
     Dosage: TAKE 3 CAPS (225 MG) PO DAILY
     Route: 048
     Dates: start: 20250212
  6. CETUXIMAB [Suspect]
     Active Substance: CETUXIMAB
     Dosage: BIWEEKLY
     Dates: start: 20240626

REACTIONS (4)
  - Colon cancer metastatic [Unknown]
  - Malignant neoplasm progression [Unknown]
  - Blood creatinine abnormal [Unknown]
  - Mean platelet volume abnormal [Unknown]
